FAERS Safety Report 22321669 (Version 1)
Quarter: 2023Q2

REPORT INFORMATION
  Report Type: Spontaneous
  Country: US (occurrence: US)
  Receive Date: 20230515
  Receipt Date: 20230515
  Transmission Date: 20230721
  Serious: Yes (Other)
  Sender: FDA-Public Use
  Company Number: US-drreddys-LIT/USA/23/0164873

PATIENT
  Age: 21 Year
  Sex: Female

DRUGS (8)
  1. DOXORUBICIN HYDROCHLORIDE [Suspect]
     Active Substance: DOXORUBICIN HYDROCHLORIDE
     Indication: Angiocentric lymphoma
     Dosage: COMPLETED 4 CYCLES
  2. RITUXIMAB [Suspect]
     Active Substance: RITUXIMAB
     Indication: Angiocentric lymphoma
     Dosage: COMPLETED 4 CYCLES
  3. ETOPOSIDE [Suspect]
     Active Substance: ETOPOSIDE
     Indication: Angiocentric lymphoma
     Dosage: COMPLETED 4 CYCLES
  4. PREDNISONE [Suspect]
     Active Substance: PREDNISONE
     Indication: Angiocentric lymphoma
     Dosage: COMPLETED 4 CYCLES
  5. PREDNISONE [Suspect]
     Active Substance: PREDNISONE
     Indication: Granuloma
  6. VINCRISTINE [Suspect]
     Active Substance: VINCRISTINE
     Indication: Angiocentric lymphoma
     Dosage: COMPLETED 4 CYCLES
  7. CYCLOPHOSPHAMIDE [Suspect]
     Active Substance: CYCLOPHOSPHAMIDE
     Indication: Angiocentric lymphoma
     Dosage: COMPLETED 4 CYCLES
  8. HYDROXYCHLOROQUINE [Suspect]
     Active Substance: HYDROXYCHLOROQUINE
     Indication: Granuloma

REACTIONS (2)
  - Respiratory failure [Unknown]
  - Bronchial secretion retention [Unknown]
